FAERS Safety Report 9700656 (Version 6)
Quarter: 2014Q1

REPORT INFORMATION
  Report Type: Report from Study
  Country: NZ (occurrence: NZ)
  Receive Date: 20131121
  Receipt Date: 20140305
  Transmission Date: 20141002
  Serious: Yes (Hospitalization, Other)
  Sender: FDA-Public Use
  Company Number: PHHY2013NZ123950

PATIENT
  Age: 28 Year
  Sex: Male

DRUGS (2)
  1. CLOZARIL [Suspect]
     Dates: start: 20130807, end: 20131030
  2. CLOZARIL [Suspect]

REACTIONS (15)
  - White blood cell count decreased [Unknown]
  - Neutrophil count decreased [Unknown]
  - Mental disorder [Unknown]
  - Nasopharyngitis [Unknown]
  - Epistaxis [Unknown]
  - Red blood cell count decreased [Unknown]
  - Red cell distribution width increased [Recovering/Resolving]
  - Haematocrit decreased [Unknown]
  - Platelet count decreased [Unknown]
  - Haemoglobin decreased [Unknown]
  - Platelet count increased [Unknown]
  - Lymphocyte count increased [Unknown]
  - Monocyte count decreased [Unknown]
  - Myelocyte count increased [Unknown]
  - Metamyelocyte count increased [Unknown]
